FAERS Safety Report 16428368 (Version 1)
Quarter: 2019Q2

REPORT INFORMATION
  Report Type: Spontaneous
  Country: US (occurrence: US)
  Receive Date: 20190613
  Receipt Date: 20190613
  Transmission Date: 20190711
  Serious: Yes (Hospitalization, Other)
  Sender: FDA-Public Use
  Company Number: US-SHIRE-US201918546

PATIENT
  Age: 82 Year
  Sex: Female
  Weight: 61 kg

DRUGS (1)
  1. GATTEX [Suspect]
     Active Substance: TEDUGLUTIDE\WATER
     Indication: PRODUCT USED FOR UNKNOWN INDICATION
     Dosage: 0.306, 1X/DAY:QD
     Route: 065
     Dates: start: 20190223

REACTIONS (1)
  - Stoma site haemorrhage [Recovering/Resolving]

NARRATIVE: CASE EVENT DATE: 20190520
